FAERS Safety Report 10189310 (Version 1)
Quarter: 2014Q2

REPORT INFORMATION
  Report Type: Spontaneous
  Country: US (occurrence: US)
  Receive Date: 20140522
  Receipt Date: 20140522
  Transmission Date: 20141212
  Serious: No
  Sender: FDA-Public Use
  Company Number: US-BAXTER-2013BAX018846

PATIENT
  Sex: Male

DRUGS (2)
  1. GAMMAGARD LIQUID [Suspect]
     Indication: NEUROPATHY PERIPHERAL
     Dosage: FIRST DOSE
     Route: 065
     Dates: start: 20130420
  2. GAMMAGARD LIQUID [Suspect]
     Dosage: SECOND DOSE
     Route: 065

REACTIONS (1)
  - Dermatitis [Unknown]
